FAERS Safety Report 10486091 (Version 1)
Quarter: 2014Q4

REPORT INFORMATION
  Report Type: Not Available
  Country: US (occurrence: US)
  Receive Date: 20141001
  Receipt Date: 20141001
  Transmission Date: 20150528
  Serious: No
  Sender: FDA-Public Use
  Company Number: US-LUPIN PHARMACEUTICALS INC.-E2B_00002328

PATIENT
  Age: 66 Year
  Sex: Female
  Weight: 86.26 kg

DRUGS (1)
  1. DULOXETINE DELAYED-RELEASE 60 MG CAPSULES USP [Suspect]
     Active Substance: DULOXETINE
     Indication: FIBROMYALGIA
     Dates: start: 20140528

REACTIONS (3)
  - Product physical issue [Unknown]
  - Therapeutic response changed [Not Recovered/Not Resolved]
  - Product use issue [Unknown]

NARRATIVE: CASE EVENT DATE: 2014
